FAERS Safety Report 9816786 (Version 1)
Quarter: 2014Q1

REPORT INFORMATION
  Report Type: Spontaneous
  Country: US (occurrence: US)
  Receive Date: 20140114
  Receipt Date: 20140114
  Transmission Date: 20141002
  Serious: No
  Sender: FDA-Public Use
  Company Number: US-ENDO PHARMACEUTICALS INC.-PERC20130020

PATIENT
  Age: 42 Year
  Sex: Male
  Weight: 97.61 kg

DRUGS (2)
  1. PERCOCET [Suspect]
     Indication: PROCEDURAL PAIN
     Dosage: UNKNOWN
     Route: 048
     Dates: start: 201301
  2. HUMIRA [Suspect]
     Indication: PSORIASIS
     Dates: start: 201211

REACTIONS (1)
  - Confusion postoperative [Unknown]
